FAERS Safety Report 7147677-8 (Version None)
Quarter: 2010Q4

REPORT INFORMATION
  Report Type: 
  Country: None (occurrence: None)
  Receive Date: 20101209
  Receipt Date: 20101130
  Transmission Date: 20110411
  Serious: No
  Sender: FDA-Public Use
  Company Number: US-BIOGENIDEC-2010BI042403

PATIENT
  Sex: Female

DRUGS (5)
  1. TYSABRI [Suspect]
     Indication: MULTIPLE SCLEROSIS
     Route: 042
     Dates: start: 20071010
  2. CARMEX [Concomitant]
     Indication: ORAL HERPES
  3. HYDROCODONE [Concomitant]
     Indication: BACK PAIN
  4. HYDROCODONE [Concomitant]
     Indication: HEADACHE
  5. HYDROCODONE [Concomitant]
     Indication: DYSMENORRHOEA

REACTIONS (12)
  - APHASIA [None]
  - BACK PAIN [None]
  - CHEST PAIN [None]
  - DRUG EFFECT DECREASED [None]
  - DYSMENORRHOEA [None]
  - HEADACHE [None]
  - MEMORY IMPAIRMENT [None]
  - MUSCLE SPASMS [None]
  - MUSCULAR WEAKNESS [None]
  - ORAL HERPES [None]
  - TREMOR [None]
  - VISION BLURRED [None]
